FAERS Safety Report 7287517-X (Version None)
Quarter: 2011Q1

REPORT INFORMATION
  Report Type: 
  Country: None (occurrence: None)
  Receive Date: 20110211
  Receipt Date: 20101221
  Transmission Date: 20110831
  Serious: Yes (Hospitalization, Other)
  Sender: FDA-Public Use
  Company Number: US-BAYER-201033965NA

PATIENT
  Sex: Female
  Weight: 63.492 kg

DRUGS (4)
  1. YAZ [Suspect]
     Indication: CONTRACEPTION
     Dosage: 1 DF, UNK
     Dates: start: 20060101, end: 20090101
  2. PRILOSEC [Concomitant]
     Dosage: 20 MG, UNK
  3. YASMIN [Suspect]
     Indication: PRODUCT USED FOR UNKNOWN INDICATION
  4. FLEXERIL [Concomitant]

REACTIONS (5)
  - CHOLECYSTITIS CHRONIC [None]
  - FLANK PAIN [None]
  - INFERTILITY [None]
  - ABDOMINAL PAIN UPPER [None]
  - BREAST NEOPLASM [None]
